FAERS Safety Report 5655973-6 (Version None)
Quarter: 2008Q1

REPORT INFORMATION
  Report Type: 
  Country: None (occurrence: None)
  Receive Date: 20080307
  Receipt Date: 20080225
  Transmission Date: 20080703
  Serious: Yes (Disabling, Other)
  Sender: FDA-Public Use
  Company Number: US-PFIZER INC-2008018100

PATIENT
  Sex: Female
  Weight: 69.545 kg

DRUGS (11)
  1. DILANTIN [Suspect]
     Indication: CONVULSION
  2. DILANTIN [Suspect]
     Indication: CONVULSION
  3. LASIX [Suspect]
  4. ARAVA [Suspect]
     Indication: OSTEOPOROSIS
  5. DIAMOX SRC [Concomitant]
  6. KLOR-CON [Concomitant]
  7. PRIMIDONE [Concomitant]
  8. OSCAL [Concomitant]
  9. REGLAN [Concomitant]
  10. ALL OTHER THERAPEUTIC PRODUCTS [Concomitant]
  11. POTASSIUM CHLORIDE [Concomitant]

REACTIONS (9)
  - ABASIA [None]
  - ANTICONVULSANT DRUG LEVEL ABNORMAL [None]
  - BODY HEIGHT DECREASED [None]
  - FIBROMYALGIA [None]
  - GRAND MAL CONVULSION [None]
  - OSTEOPOROSIS [None]
  - POLLAKIURIA [None]
  - RHEUMATOID ARTHRITIS [None]
  - WALKING AID USER [None]
